FAERS Safety Report 18054559 (Version 1)
Quarter: 2020Q3

REPORT INFORMATION
  Report Type: Spontaneous
  Country: US (occurrence: US)
  Receive Date: 20200722
  Receipt Date: 20200722
  Transmission Date: 20201103
  Serious: Yes (Other)
  Sender: FDA-Public Use
  Company Number: US-PFIZER INC-2020277752

PATIENT
  Age: 58 Year
  Sex: Male

DRUGS (1)
  1. XELJANZ XR [Suspect]
     Active Substance: TOFACITINIB CITRATE
     Dosage: UNK

REACTIONS (11)
  - Rheumatoid arthritis [Unknown]
  - Autoimmune disorder [Unknown]
  - Back pain [Unknown]
  - Crohn^s disease [Unknown]
  - Blindness [Unknown]
  - Back disorder [Unknown]
  - Ankylosing spondylitis [Unknown]
  - Pain [Unknown]
  - Arthralgia [Unknown]
  - Pain in extremity [Unknown]
  - Deafness [Unknown]
